FAERS Safety Report 9502231 (Version 1)
Quarter: 2013Q3

REPORT INFORMATION
  Report Type: Spontaneous
  Country: UA (occurrence: UA)
  Receive Date: 20130906
  Receipt Date: 20130906
  Transmission Date: 20140515
  Serious: Yes (Hospitalization)
  Sender: FDA-Public Use
  Company Number: UA-ABBOTT-13X-269-1141602-00

PATIENT
  Sex: Female

DRUGS (2)
  1. TARKA [Suspect]
     Indication: ESSENTIAL HYPERTENSION
     Dosage: 4/240 MG
     Route: 048
     Dates: start: 201307, end: 201307
  2. TARKA [Suspect]
     Indication: PALPITATIONS

REACTIONS (4)
  - Arrhythmia [Recovered/Resolved]
  - Malaise [Recovered/Resolved]
  - Blood pressure decreased [Recovered/Resolved]
  - Incorrect drug dosage form administered [Unknown]
